FAERS Safety Report 6102199-8 (Version None)
Quarter: 2009Q1

REPORT INFORMATION
  Report Type: 
  Country: None (occurrence: None)
  Receive Date: 20090304
  Receipt Date: 20090219
  Transmission Date: 20090719
  Serious: Yes (Other)
  Sender: FDA-Public Use
  Company Number: AU-BRISTOL-MYERS SQUIBB COMPANY-14514236

PATIENT
  Age: 61 Year
  Sex: Female

DRUGS (13)
  1. ABATACEPT [Suspect]
     Indication: RHEUMATOID ARTHRITIS
     Route: 058
     Dates: start: 20080331, end: 20090216
  2. COVERSYL PLUS [Concomitant]
     Dates: start: 20050101
  3. FELODUR [Concomitant]
     Dates: start: 20080201
  4. FISH OIL [Concomitant]
     Dates: start: 20030101
  5. MULTI-VITAMIN [Concomitant]
     Dosage: WOMENS MULTIVITAMIN
     Dates: start: 20030101
  6. BACLOFEN [Concomitant]
     Dates: start: 20020101
  7. ENDEP [Concomitant]
     Dates: start: 20010501
  8. CALTRATE [Concomitant]
     Dosage: CALTRATE PLUS
     Dates: start: 20010101
  9. SYMBICORT [Concomitant]
     Dates: start: 19880101
  10. PARACETAMOL [Concomitant]
     Dates: start: 19680101
  11. REFRESH [Concomitant]
     Dosage: REFRESH EYE DROPS
     Dates: start: 20050101
  12. LIPITOR [Concomitant]
     Dates: start: 20080422
  13. MELOXICAM [Concomitant]
     Dates: start: 20080909

REACTIONS (1)
  - GLIOSIS [None]
